FAERS Safety Report 6693834-4 (Version None)
Quarter: 2010Q2

REPORT INFORMATION
  Report Type: 
  Country: None (occurrence: None)
  Receive Date: 20100423
  Receipt Date: 20100414
  Transmission Date: 20101027
  Serious: Yes (Hospitalization)
  Sender: FDA-Public Use
  Company Number: GB-ASTRAZENECA-2010SE16421

PATIENT
  Age: 35 Year
  Sex: Female

DRUGS (3)
  1. QUETIAPINE [Suspect]
     Indication: DEPRESSION
     Route: 048
  2. NITRAZEPAM [Suspect]
  3. FLUOXETINE [Concomitant]
     Indication: DEPRESSION

REACTIONS (1)
  - MULTIPLE DRUG OVERDOSE [None]
